FAERS Safety Report 12978640 (Version 5)
Quarter: 2017Q4

REPORT INFORMATION
  Report Type: Spontaneous
  Country: US (occurrence: US)
  Receive Date: 20161128
  Receipt Date: 20171221
  Transmission Date: 20180320
  Serious: Yes (Hospitalization, Other)
  Sender: FDA-Public Use
  Company Number: US-PFIZER INC-2016547569

PATIENT
  Age: 67 Year
  Sex: Female
  Weight: 53.52 kg

DRUGS (7)
  1. TYVASO [Concomitant]
     Active Substance: TREPROSTINIL
     Indication: PULMONARY HYPERTENSION
     Dosage: 4X/DAY (IT^S 12 BREATHS)
     Route: 055
  2. REVATIO [Suspect]
     Active Substance: SILDENAFIL CITRATE
     Indication: HYPERTENSION
  3. TRACLEER [Concomitant]
     Active Substance: BOSENTAN
     Indication: PULMONARY HYPERTENSION
     Dosage: 125 MG, 2X/DAY
  4. ULORIC [Concomitant]
     Active Substance: FEBUXOSTAT
     Indication: GOUT
     Dosage: 60 MG, 2X/DAY
     Route: 048
  5. PRILOSEC [Concomitant]
     Active Substance: OMEPRAZOLE MAGNESIUM
     Indication: GASTRIC DISORDER
     Dosage: 20 MG, 2X/DAY
  6. REVATIO [Suspect]
     Active Substance: SILDENAFIL CITRATE
     Indication: PULMONARY HYPERTENSION
     Dosage: 80 MG, 3X/DAY (TAKE 4 OF THEM 3 TIMES A DAY)
     Route: 048
  7. REVATIO [Suspect]
     Active Substance: SILDENAFIL CITRATE
     Indication: PULMONARY ARTERIAL HYPERTENSION
     Dosage: 80 MG, 3X/DAY (TAKE 4 OF THEM 3 TIMES A DAY)
     Route: 048
     Dates: start: 2012

REACTIONS (6)
  - Malaise [Unknown]
  - Decreased activity [Unknown]
  - Pneumonia [Unknown]
  - Staphylococcal infection [Unknown]
  - Product use issue [Unknown]
  - Bronchitis [Unknown]

NARRATIVE: CASE EVENT DATE: 2012
